FAERS Safety Report 5960364-4 (Version None)
Quarter: 2008Q4

REPORT INFORMATION
  Report Type: 
  Country: None (occurrence: None)
  Receive Date: 20081120
  Receipt Date: 20081110
  Transmission Date: 20090506
  Serious: Yes (Hospitalization)
  Sender: FDA-Public Use
  Company Number: DE-WYE-G02540008

PATIENT
  Age: 65 Year
  Sex: Female
  Weight: 58.5 kg

DRUGS (11)
  1. VENLAFAXINE HCL [Interacting]
     Indication: DEPRESSION
     Route: 048
     Dates: start: 20080604, end: 20080605
  2. VENLAFAXINE HCL [Interacting]
     Indication: PSYCHOTIC DISORDER
     Route: 048
     Dates: start: 20080606, end: 20080606
  3. VENLAFAXINE HCL [Interacting]
     Route: 048
     Dates: start: 20080610, end: 20080101
  4. VENLAFAXINE HCL [Interacting]
     Dosage: DOSE INCREASE UP TO 300 MG/D
     Route: 048
     Dates: start: 20080101, end: 20080828
  5. KALINOR [Concomitant]
     Indication: HYPOKALAEMIA
     Route: 048
     Dates: start: 20080606, end: 20080606
  6. SODIUM CHLORIDE 0.9% [Concomitant]
     Indication: BLOOD SODIUM DECREASED
     Route: 048
     Dates: start: 20080605, end: 20080606
  7. SOLIAN [Suspect]
     Route: 048
     Dates: start: 20060101, end: 20080606
  8. SOLIAN [Suspect]
     Route: 048
     Dates: start: 20080608, end: 20080608
  9. SOLIAN [Suspect]
     Route: 048
     Dates: start: 20080609, end: 20080818
  10. AMITRIPTYLINE HCL [Interacting]
     Route: 048
     Dates: start: 20060101, end: 20080606
  11. AMITRIPTYLINE HCL [Interacting]
     Route: 048
     Dates: start: 20080827

REACTIONS (4)
  - DRUG INTERACTION [None]
  - GRAND MAL CONVULSION [None]
  - HYPOTENSION [None]
  - LOSS OF CONSCIOUSNESS [None]
